FAERS Safety Report 5627472-9 (Version None)
Quarter: 2008Q1

REPORT INFORMATION
  Report Type: 
  Country: None (occurrence: None)
  Receive Date: 20080214
  Receipt Date: 20080214
  Transmission Date: 20080703
  Serious: Yes (Other)
  Sender: FDA-Public Use
  Company Number: None

PATIENT
  Sex: Female
  Weight: 75.2971 kg

DRUGS (1)
  1. CHANTIX [Suspect]
     Indication: SMOKING CESSATION THERAPY
     Dosage: 0.5MG 1 BID PO
     Route: 048
     Dates: start: 20071103, end: 20080213

REACTIONS (21)
  - ABNORMAL BEHAVIOUR [None]
  - ARTHRALGIA [None]
  - BRADYPHRENIA [None]
  - DECREASED APPETITE [None]
  - FATIGUE [None]
  - FLAT AFFECT [None]
  - FOOD CRAVING [None]
  - HOT FLUSH [None]
  - IMPAIRED WORK ABILITY [None]
  - INSOMNIA [None]
  - MENOPAUSAL SYMPTOMS [None]
  - MOOD ALTERED [None]
  - MUSCLE SPASMS [None]
  - NAUSEA [None]
  - PAIN IN EXTREMITY [None]
  - POLYURIA [None]
  - SPEECH DISORDER [None]
  - TANGENTIALITY [None]
  - THINKING ABNORMAL [None]
  - VOMITING [None]
  - WEIGHT DECREASED [None]
